FAERS Safety Report 5097607-8 (Version None)
Quarter: 2006Q3

REPORT INFORMATION
  Report Type: 
  Country: None (occurrence: None)
  Receive Date: 20060901
  Receipt Date: 20060824
  Transmission Date: 20061208
  Serious: No
  Sender: FDA-Public Use
  Company Number: CH200608003157

PATIENT
  Age: 26 Year
  Sex: Male

DRUGS (2)
  1. ZYPREXA [Suspect]
     Indication: PERSONALITY DISORDER
     Dosage: 10 MG, DAILY (1/D), ORAL ; 5 MG, DAILY (1/D), ORAL
     Route: 048
     Dates: start: 20060709, end: 20060712
  2. ZYPREXA [Suspect]
     Indication: PERSONALITY DISORDER
     Dosage: 10 MG, DAILY (1/D), ORAL ; 5 MG, DAILY (1/D), ORAL
     Route: 048
     Dates: start: 20060606

REACTIONS (2)
  - GRANULOCYTOPENIA [None]
  - NEUTROPENIA [None]
